FAERS Safety Report 11411245 (Version 1)
Quarter: 2015Q3

REPORT INFORMATION
  Report Type: Spontaneous
  Country: US (occurrence: US)
  Receive Date: 20150821
  Receipt Date: 20150821
  Transmission Date: 20151125
  Serious: No
  Sender: FDA-Public Use
  Company Number: US-ELI_LILLY_AND_COMPANY-US201005004230

PATIENT
  Sex: Female

DRUGS (10)
  1. HUMULIN N [Suspect]
     Active Substance: INSULIN HUMAN
     Dosage: 23 U, EACH EVENING
     Dates: start: 1993, end: 201003
  2. HUMULIN R [Suspect]
     Active Substance: INSULIN HUMAN
     Dosage: 10 U, EACH EVENING
     Dates: start: 1993
  3. LANTUS [Concomitant]
     Active Substance: INSULIN GLARGINE
  4. ATENOL [Concomitant]
     Active Substance: ATENOLOL
  5. HUMULIN R [Suspect]
     Active Substance: INSULIN HUMAN
     Dosage: 10 U, EACH MORNING
     Dates: start: 1993
  6. HUMULIN R [Suspect]
     Active Substance: INSULIN HUMAN
     Indication: DIABETES MELLITUS
     Dosage: 10 U, EACH MORNING
     Dates: start: 1993
  7. HUMULIN R [Suspect]
     Active Substance: INSULIN HUMAN
     Dosage: 10 U, EACH EVENING
     Dates: start: 1993
  8. HUMULIN N [Suspect]
     Active Substance: INSULIN HUMAN
     Indication: DIABETES MELLITUS
     Dosage: 23 U, EACH MORNING
     Dates: start: 1993, end: 201003
  9. DIOVAN [Concomitant]
     Active Substance: VALSARTAN
  10. GLYBURIDE. [Concomitant]
     Active Substance: GLYBURIDE

REACTIONS (5)
  - Sleep disorder [Recovered/Resolved]
  - Drug dose omission [Recovered/Resolved]
  - Blood glucose increased [Recovered/Resolved]
  - Blood glucose decreased [Recovered/Resolved]
  - Blood pressure increased [Recovered/Resolved]

NARRATIVE: CASE EVENT DATE: 1993
